FAERS Safety Report 15457222 (Version 3)
Quarter: 2018Q4

REPORT INFORMATION
  Report Type: Spontaneous
  Country: US (occurrence: US)
  Receive Date: 20181002
  Receipt Date: 20181204
  Transmission Date: 20190204
  Serious: Yes (Death, Other)
  Sender: FDA-Public Use
  Company Number: US-TAKEDA-2018TUS028601

PATIENT

DRUGS (66)
  1. NEXIUM [Suspect]
     Active Substance: ESOMEPRAZOLE MAGNESIUM
     Indication: GASTROOESOPHAGEAL REFLUX DISEASE
     Dosage: 20 MG, BID
     Route: 048
     Dates: start: 2014, end: 2015
  2. NEXIUM 24HR [Suspect]
     Active Substance: ESOMEPRAZOLE MAGNESIUM
     Indication: GASTRIC ULCER
     Dosage: UNK
     Route: 048
  3. PRILOSEC [Suspect]
     Active Substance: OMEPRAZOLE MAGNESIUM
     Indication: GASTROOESOPHAGEAL REFLUX DISEASE
  4. CLONIDINE. [Concomitant]
     Active Substance: CLONIDINE
     Indication: PROSTATE CANCER
     Dosage: UNK
  5. CLONIDINE. [Concomitant]
     Active Substance: CLONIDINE
     Dosage: 100 MG, 1X/DAY
     Route: 048
  6. DEXILANT [Concomitant]
     Active Substance: DEXLANSOPRAZOLE
     Dosage: 60.0MG UNKNOWN
     Route: 065
  7. FERREX [Concomitant]
     Active Substance: FERRIC POLYSACCHARIDE COMPLEX
  8. PREVACID [Suspect]
     Active Substance: LANSOPRAZOLE
     Indication: GASTROOESOPHAGEAL REFLUX DISEASE
  9. NEXIUM [Suspect]
     Active Substance: ESOMEPRAZOLE MAGNESIUM
     Indication: ULCER
     Dosage: 20 MG, BID
     Route: 048
     Dates: start: 20120326, end: 2015
  10. NEXIUM 24HR [Suspect]
     Active Substance: ESOMEPRAZOLE MAGNESIUM
     Indication: PRODUCT USED FOR UNKNOWN INDICATION
     Dosage: UNK
     Route: 048
  11. OMEPRAZOLE MAGNESIUM. [Suspect]
     Active Substance: OMEPRAZOLE MAGNESIUM
     Indication: GASTROOESOPHAGEAL REFLUX DISEASE
     Dosage: UNK
     Route: 048
     Dates: start: 20120326
  12. CARVEDILOL. [Concomitant]
     Active Substance: CARVEDILOL
     Indication: CARDIAC DISORDER
     Dosage: ONCE EVERY 9 MONTHS
  13. SENSIPAR [Concomitant]
     Active Substance: CINACALCET HYDROCHLORIDE
  14. ACETAMINOPHEN W/OXYCODONE [Concomitant]
     Active Substance: ACETAMINOPHEN\OXYCODONE HYDROCHLORIDE
     Dosage: 325 MG, UNK,PRN 10 DAYS
     Route: 065
     Dates: start: 2015, end: 2016
  15. NEXIUM 24HR [Suspect]
     Active Substance: ESOMEPRAZOLE MAGNESIUM
     Indication: GASTROOESOPHAGEAL REFLUX DISEASE
     Dosage: UNK
     Route: 048
  16. PRILOSEC [Suspect]
     Active Substance: OMEPRAZOLE MAGNESIUM
     Indication: GASTROOESOPHAGEAL REFLUX DISEASE
     Dosage: 20 MG, QD
     Route: 048
  17. CLONIDINE. [Concomitant]
     Active Substance: CLONIDINE
     Indication: BLOOD CHOLESTEROL
     Dosage: ONCE EVERY 6 MONTHS
  18. CLONIDINE. [Concomitant]
     Active Substance: CLONIDINE
     Dosage: 300 MG, 1X/DAY
     Route: 065
  19. CLONIDINE. [Concomitant]
     Active Substance: CLONIDINE
     Dosage: 5 MG, 1X/DAY
  20. CARVEDILOL. [Concomitant]
     Active Substance: CARVEDILOL
     Indication: PROSTATIC DISORDER
     Dosage: UNK
     Dates: start: 2012, end: 2016
  21. AMARYL [Concomitant]
     Active Substance: GLIMEPIRIDE
  22. ACETAMINOPHEN;HYDROCODONE [Concomitant]
     Indication: PAIN
     Dosage: UNK
     Dates: start: 2012, end: 2015
  23. CINACALCET HYDROCHLORIDE. [Concomitant]
     Active Substance: CINACALCET HYDROCHLORIDE
     Dosage: UNK
  24. WARFARIN SODIUM. [Concomitant]
     Active Substance: WARFARIN SODIUM
     Dosage: UNK
  25. ALLOPURINOL                        /00003302/ [Concomitant]
     Active Substance: ALLOPURINOL
  26. PREVACID [Suspect]
     Active Substance: LANSOPRAZOLE
     Indication: GASTROOESOPHAGEAL REFLUX DISEASE
     Dosage: 50 MG, BID
     Route: 065
     Dates: start: 2014
  27. PREVACID 24 HR [Suspect]
     Active Substance: LANSOPRAZOLE
     Indication: PRODUCT USED FOR UNKNOWN INDICATION
     Dosage: UNK
     Route: 048
  28. NEXIUM [Suspect]
     Active Substance: ESOMEPRAZOLE MAGNESIUM
     Indication: GASTROOESOPHAGEAL REFLUX DISEASE
     Dosage: 20 MG, UNK
     Route: 048
     Dates: start: 20140619, end: 20150616
  29. NEXIUM [Suspect]
     Active Substance: ESOMEPRAZOLE MAGNESIUM
     Dosage: 40 MG, UNK
     Route: 065
  30. CLONIDINE. [Concomitant]
     Active Substance: CLONIDINE
     Indication: CARDIAC DISORDER
     Dosage: 0.2 MG, 3X/DAY
     Route: 048
  31. CLONIDINE. [Concomitant]
     Active Substance: CLONIDINE
     Dosage: 0.2 MG, 2X/DAY
     Route: 048
  32. CLONIDINE. [Concomitant]
     Active Substance: CLONIDINE
     Dosage: 4 MG, 1X/DAY
     Route: 065
  33. CLONIDINE. [Concomitant]
     Active Substance: CLONIDINE
     Dosage: 20.0MG UNKNOWN
     Route: 048
  34. TAMSULOSIN [Concomitant]
     Active Substance: TAMSULOSIN
     Indication: PROSTATOMEGALY
     Dosage: UNK
  35. SIMVASTATIN. [Concomitant]
     Active Substance: SIMVASTATIN
     Indication: HYPERCHOLESTEROLAEMIA
     Dosage: UNK
  36. CIALIS [Concomitant]
     Active Substance: TADALAFIL
  37. PREVACID [Suspect]
     Active Substance: LANSOPRAZOLE
     Indication: GASTRIC ULCER
  38. CLONIDINE. [Concomitant]
     Active Substance: CLONIDINE
     Indication: BLOOD PRESSURE ABNORMAL
     Dosage: 0.1 MG, 3X/DAY
     Route: 048
     Dates: start: 2012, end: 2016
  39. CLONIDINE. [Concomitant]
     Active Substance: CLONIDINE
     Dosage: 20 MG, 1X/DAY
     Route: 048
  40. CARVEDILOL. [Concomitant]
     Active Substance: CARVEDILOL
     Indication: INFLAMMATION
     Dosage: ONCE EVERY 6 MONTHS
  41. DILTIAZEM. [Concomitant]
     Active Substance: DILTIAZEM
     Dosage: UNK
  42. CLONIDINE. [Concomitant]
     Active Substance: CLONIDINE
     Indication: HYPERTENSION
     Dosage: UNK
  43. CARVEDILOL. [Concomitant]
     Active Substance: CARVEDILOL
     Indication: PROSTATOMEGALY
     Dosage: UNK
  44. PREDNISONE. [Concomitant]
     Active Substance: PREDNISONE
     Indication: INFLAMMATION
     Dosage: UNK
  45. LISINOPRIL. [Concomitant]
     Active Substance: LISINOPRIL
     Indication: CARDIAC DISORDER
     Dosage: UNK
  46. VLORIC [Concomitant]
     Indication: GOUT
  47. ZEMPLAR [Concomitant]
     Active Substance: PARICALCITOL
  48. ATORVASTATIN                       /01326102/ [Concomitant]
     Active Substance: ATORVASTATIN
     Dosage: UNK
  49. GLIMEPIRIDE. [Concomitant]
     Active Substance: GLIMEPIRIDE
     Dosage: UNK
  50. NEXIUM [Suspect]
     Active Substance: ESOMEPRAZOLE MAGNESIUM
     Dosage: 20 MG, UNK
     Route: 065
  51. OMEPRAZOLE MAGNESIUM. [Suspect]
     Active Substance: OMEPRAZOLE MAGNESIUM
     Indication: GASTRIC ULCER
     Dosage: 20 MG, QD
     Route: 048
     Dates: start: 2016
  52. CLONIDINE. [Concomitant]
     Active Substance: CLONIDINE
     Indication: INFLAMMATION
     Dosage: ONCE EVERY 9 MONTHS
  53. CARVEDILOL. [Concomitant]
     Active Substance: CARVEDILOL
     Indication: PROSTATE CANCER
     Dosage: UNK
  54. ULORIC [Concomitant]
     Active Substance: FEBUXOSTAT
     Indication: GOUT
     Dosage: UNK
  55. IBUPROFEN. [Concomitant]
     Active Substance: IBUPROFEN
     Indication: HEADACHE
     Dosage: UNK
  56. NAPROXEN. [Concomitant]
     Active Substance: NAPROXEN
     Indication: PERIPHERAL SWELLING
     Dosage: UNK
  57. FLEXERIL [Concomitant]
     Active Substance: CYCLOBENZAPRINE HYDROCHLORIDE
  58. PARICALCITOL. [Concomitant]
     Active Substance: PARICALCITOL
     Dosage: UNK
  59. PREVACID [Suspect]
     Active Substance: LANSOPRAZOLE
     Indication: ULCER
  60. PREVACID [Suspect]
     Active Substance: LANSOPRAZOLE
     Indication: ULCER
  61. PREVACID 24 HR [Suspect]
     Active Substance: LANSOPRAZOLE
     Indication: GASTROOESOPHAGEAL REFLUX DISEASE
     Dosage: 50 MG, BID
     Route: 065
     Dates: start: 2014
  62. PREVACID 24 HR [Suspect]
     Active Substance: LANSOPRAZOLE
     Indication: GASTRIC ULCER
  63. PRILOSEC [Suspect]
     Active Substance: OMEPRAZOLE MAGNESIUM
     Indication: ULCER
  64. CARVEDILOL. [Concomitant]
     Active Substance: CARVEDILOL
     Indication: BLOOD CHOLESTEROL
     Dosage: UNK
     Dates: start: 2015, end: 2016
  65. BETAPACE [Concomitant]
     Active Substance: SOTALOL HYDROCHLORIDE
  66. FUROSEMIDE. [Concomitant]
     Active Substance: FUROSEMIDE
     Dosage: UNK

REACTIONS (6)
  - Cardiovascular disorder [Fatal]
  - End stage renal disease [Unknown]
  - Chronic kidney disease [Fatal]
  - Renal failure [Unknown]
  - Death [Fatal]
  - Acute kidney injury [Unknown]

NARRATIVE: CASE EVENT DATE: 20120326
